FAERS Safety Report 6466276-4 (Version None)
Quarter: 2009Q4

REPORT INFORMATION
  Report Type: 
  Country: None (occurrence: None)
  Receive Date: 20091202
  Receipt Date: 20091127
  Transmission Date: 20100525
  Serious: No
  Sender: FDA-Public Use
  Company Number: US-B.I. PHARMACEUTICALS,INC./RIDGEFIELD-2009-BP-13813BP

PATIENT
  Sex: Female

DRUGS (9)
  1. SPIRIVA [Suspect]
     Indication: EMPHYSEMA
     Dosage: 18 MCG
     Route: 055
     Dates: start: 20091001, end: 20091001
  2. SPIRIVA [Suspect]
     Indication: BRONCHITIS
  3. VITAMINS [Concomitant]
     Indication: PROPHYLAXIS
  4. DILANTIN [Concomitant]
     Indication: CONVULSION
  5. PHENOBARBITAL [Concomitant]
     Indication: CONVULSION
  6. EVISTA [Concomitant]
     Indication: OSTEOPOROSIS
  7. NEXIUM [Concomitant]
     Indication: ARTERIOVENOUS MALFORMATION
  8. ZETOLIN [Concomitant]
     Indication: EMPHYSEMA
  9. OXYGEN [Concomitant]

REACTIONS (2)
  - CONSTIPATION [None]
  - DYSPHONIA [None]
